FAERS Safety Report 24377269 (Version 1)
Quarter: 2024Q3

REPORT INFORMATION
  Report Type: Spontaneous
  Country: CA (occurrence: CA)
  Receive Date: 20240930
  Receipt Date: 20240930
  Transmission Date: 20241016
  Serious: Yes (Other)
  Sender: CELLTRION
  Company Number: CA-PFIZER INC-202300377298

PATIENT

DRUGS (4)
  1. INFLECTRA [Suspect]
     Active Substance: INFLIXIMAB-DYYB
     Indication: Uveitis
     Dosage: 195 MG, AT WEEK 0, 2 AND 6 THEN Q 6 WEEK
     Route: 042
     Dates: start: 20240202, end: 20240202
  2. INFLECTRA [Suspect]
     Active Substance: INFLIXIMAB-DYYB
     Dosage: 195 MG, AT WEEK 0, 2 AND 6 THEN Q 6 WEEK
     Route: 042
     Dates: start: 20240906
  3. METHOTREXATE [Suspect]
     Active Substance: METHOTREXATE
     Indication: Uveitis
     Dosage: 12.5 MG, WEEKLY (1 DF, FOR 4 MONTHS, DISCONTINUED)
     Route: 065
  4. HYDROCHLOROTHIAZIDE [Concomitant]
     Active Substance: HYDROCHLOROTHIAZIDE
     Dosage: UNK

REACTIONS (5)
  - Hepatic fibrosis [Recovering/Resolving]
  - Hepatic steatosis [Recovering/Resolving]
  - Weight increased [Unknown]
  - Transaminases increased [Recovering/Resolving]
  - Off label use [Unknown]

NARRATIVE: CASE EVENT DATE: 20240101
